FAERS Safety Report 9799064 (Version 1)
Quarter: 2014Q1

REPORT INFORMATION
  Report Type: Spontaneous
  Country: US (occurrence: US)
  Receive Date: 20140106
  Receipt Date: 20140106
  Transmission Date: 20141002
  Serious: Yes (Hospitalization, Other)
  Sender: FDA-Public Use
  Company Number: US-CELGENEUS-163-21880-14010021

PATIENT
  Age: 68 Year
  Sex: Female
  Weight: 73.09 kg

DRUGS (1)
  1. REVLIMID [Suspect]
     Indication: PLASMA CELL MYELOMA
     Dosage: 15 MILLIGRAM
     Route: 048
     Dates: start: 20130710

REACTIONS (4)
  - Purpura [Not Recovered/Not Resolved]
  - Haemoptysis [Not Recovered/Not Resolved]
  - Haematuria [Not Recovered/Not Resolved]
  - Epistaxis [Not Recovered/Not Resolved]
